FAERS Safety Report 15838663 (Version 1)
Quarter: 2019Q1

REPORT INFORMATION
  Report Type: Spontaneous
  Country: US (occurrence: US)
  Receive Date: 20190117
  Receipt Date: 20190117
  Transmission Date: 20190417
  Serious: Yes (Death, Life-Threatening, Hospitalization)
  Sender: FDA-Public Use
  Company Number: US-TEVA-2019-US-999636

PATIENT
  Sex: Male

DRUGS (1)
  1. AMIODARONE [Suspect]
     Active Substance: AMIODARONE
     Indication: ATRIAL FIBRILLATION
     Route: 065

REACTIONS (11)
  - Dyspnoea [Unknown]
  - Wheezing [Unknown]
  - Pulmonary toxicity [Unknown]
  - Pulmonary fibrosis [Fatal]
  - Respiratory failure [Fatal]
  - Fatigue [Unknown]
  - Oedema [Unknown]
  - General physical health deterioration [Unknown]
  - Cough [Unknown]
  - Asthenia [Unknown]
  - Chest pain [Unknown]
